FAERS Safety Report 8239101-9 (Version None)
Quarter: 2012Q1

REPORT INFORMATION
  Report Type: 
  Country: None (occurrence: None)
  Receive Date: 20120327
  Receipt Date: 20120315
  Transmission Date: 20120608
  Serious: Yes (Other)
  Sender: FDA-Public Use
  Company Number: GR-ELI_LILLY_AND_COMPANY-GR201203005217

PATIENT
  Age: 47 Year
  Sex: Male

DRUGS (3)
  1. OLANZAPINE [Suspect]
     Indication: SCHIZOPHRENIA
     Dosage: 405 MG, MONTHLY (1/M)
     Route: 030
     Dates: start: 20101001
  2. OLANZAPINE [Suspect]
     Dosage: 210 MG, UNK
  3. SERDOLECT [Concomitant]
     Indication: SCHIZOPHRENIA
     Dosage: 56 MG, QD
     Route: 048

REACTIONS (6)
  - ATAXIA [None]
  - PALPITATIONS [None]
  - DIZZINESS [None]
  - MALAISE [None]
  - DIARRHOEA [None]
  - SOMNOLENCE [None]
